FAERS Safety Report 6622149-5 (Version None)
Quarter: 2010Q1

REPORT INFORMATION
  Report Type: 
  Country: None (occurrence: None)
  Receive Date: 20100309
  Receipt Date: 20100302
  Transmission Date: 20100710
  Serious: Yes (Other)
  Sender: FDA-Public Use
  Company Number: DE-BRISTOL-MYERS SQUIBB COMPANY-14965347

PATIENT
  Age: 55 Year
  Sex: Male
  Weight: 72 kg

DRUGS (7)
  1. ARIPIPRAZOLE [Suspect]
     Route: 048
  2. AMLODIPINE [Suspect]
     Route: 048
  3. METOPROLOL [Suspect]
  4. MOXONIDINE [Suspect]
  5. SERTRALINE HCL [Suspect]
  6. XIPAMIDE [Suspect]
  7. ALCOHOL [Suspect]

REACTIONS (6)
  - BRADYCARDIA [None]
  - HYPOTENSION [None]
  - MULTIPLE DRUG OVERDOSE INTENTIONAL [None]
  - RENAL FAILURE [None]
  - SOMNOLENCE [None]
  - SUICIDE ATTEMPT [None]
